FAERS Safety Report 21926491 (Version 2)
Quarter: 2023Q1

REPORT INFORMATION
  Report Type: Spontaneous
  Country: IT (occurrence: IT)
  Receive Date: 20230130
  Receipt Date: 20230208
  Transmission Date: 20230417
  Serious: Yes (Hospitalization, Other)
  Sender: FDA-Public Use
  Company Number: None

PATIENT
  Age: 13 Year
  Sex: Male
  Weight: 50.8 kg

DRUGS (2)
  1. HUMIRA [Suspect]
     Active Substance: ADALIMUMAB
     Indication: Uveitis
     Dosage: 40MG EVERY 14 DAYS
     Route: 058
     Dates: start: 201710, end: 202011
  2. HUMIRA [Suspect]
     Active Substance: ADALIMUMAB
     Indication: Juvenile idiopathic arthritis

REACTIONS (2)
  - Proteinuria [Recovering/Resolving]
  - IgA nephropathy [Recovering/Resolving]

NARRATIVE: CASE EVENT DATE: 20201101
